FAERS Safety Report 8212970-4 (Version None)
Quarter: 2012Q1

REPORT INFORMATION
  Report Type: 
  Country: None (occurrence: None)
  Receive Date: 20120315
  Receipt Date: 20120312
  Transmission Date: 20120608
  Serious: Yes (Hospitalization)
  Sender: FDA-Public Use
  Company Number: FR-PFIZER INC-2012064113

PATIENT
  Age: 60 Year
  Sex: Female

DRUGS (5)
  1. DEPO-MEDROL [Concomitant]
     Indication: ACUTE MYELOID LEUKAEMIA
     Dosage: UNK
     Route: 037
  2. CYTARABINE [Suspect]
     Dosage: UNK
     Route: 037
  3. IDARUBICIN HYDROCHLORIDE [Suspect]
     Indication: ACUTE MYELOID LEUKAEMIA
     Dosage: TOTAL DOSE: 64.44 MG (12.0 MG/M2), ON DAYS 1-3
     Route: 042
     Dates: start: 20120126, end: 20120128
  4. METHOTREXATE [Concomitant]
     Indication: ACUTE MYELOID LEUKAEMIA
     Dosage: UNK
     Route: 037
  5. CYTARABINE [Suspect]
     Indication: ACUTE MYELOID LEUKAEMIA
     Dosage: TOTAL DOSE: 2506 MG (200.0 MG/M2), ON DAYS 1-7
     Route: 042
     Dates: start: 20120126, end: 20120201

REACTIONS (2)
  - GASTROINTESTINAL NECROSIS [None]
  - APLASIA [None]
